FAERS Safety Report 7595670 (Version 2)
Quarter: 2017Q1

REPORT INFORMATION
  Report Type: Report from Study
  Country: US (occurrence: US)
  Receive Date: 20100920
  Receipt Date: 20170111
  Transmission Date: 20170429
  Serious: No
  Sender: FDA-Public Use
  Company Number: US-ASTRAZENECA-2010SE20347

PATIENT
  Age: 22600 Day
  Sex: Female

DRUGS (3)
  1. SEROQUEL XR [Suspect]
     Active Substance: QUETIAPINE FUMARATE
     Indication: HYPERACUSIS
     Dosage: DAILY
     Route: 048
  2. ONGLYZA [Suspect]
     Active Substance: SAXAGLIPTIN HYDROCHLORIDE
     Indication: TYPE 2 DIABETES MELLITUS
     Route: 048
     Dates: start: 2013, end: 2014
  3. SEROQUEL XR [Suspect]
     Active Substance: QUETIAPINE FUMARATE
     Indication: FEELING ABNORMAL
     Dosage: DAILY
     Route: 048

REACTIONS (8)
  - Weight decreased [Unknown]
  - Ear infection [Unknown]
  - Visual impairment [Unknown]
  - Off label use [Unknown]
  - Memory impairment [Unknown]
  - Diarrhoea [Unknown]
  - Nervousness [Unknown]
  - Product use issue [Unknown]

NARRATIVE: CASE EVENT DATE: 20161229
